FAERS Safety Report 8315628 (Version 5)
Quarter: 2014Q2

REPORT INFORMATION
  Report Type: Report from Study
  Country: US (occurrence: US)
  Receive Date: 20111229
  Receipt Date: 20140509
  Transmission Date: 20141212
  Serious: Yes (Hospitalization, Congenital Anomaly)
  Sender: FDA-Public Use
  Company Number: US-ROCHE-1022742

PATIENT
  Age: 18 Month
  Sex: 0
  Weight: 3.18 kg

DRUGS (6)
  1. OMALIZUMAB [Suspect]
     Indication: PRODUCT USED FOR UNKNOWN INDICATION
     Dosage: LAST DOSE PRIOR TO SAE 25/SEP/2009
     Route: 064
     Dates: start: 20070208
  2. ZANTAC [Concomitant]
     Indication: GASTROOESOPHAGEAL REFLUX DISEASE
     Route: 065
     Dates: start: 201007, end: 201012
  3. OMNICEF (UNITED STATES) [Concomitant]
     Indication: OTITIS MEDIA
  4. ERYTHROMYCIN OPHTHALMIC [Concomitant]
     Indication: CONJUNCTIVITIS
  5. AUGMENTIN [Concomitant]
     Indication: OTITIS MEDIA
  6. DESONIDE CREAM [Concomitant]
     Indication: DERMATITIS ATOPIC

REACTIONS (1)
  - Vesicoureteric reflux [Recovered/Resolved]
